FAERS Safety Report 5754350-7 (Version None)
Quarter: 2008Q2

REPORT INFORMATION
  Report Type: 
  Country: None (occurrence: None)
  Receive Date: 20080530
  Receipt Date: 20080519
  Transmission Date: 20081010
  Serious: Yes (Other)
  Sender: FDA-Public Use
  Company Number: US-PFIZER INC-2008019348

PATIENT
  Sex: Female
  Weight: 75.909 kg

DRUGS (3)
  1. DILANTIN [Suspect]
     Indication: RUPTURED CEREBRAL ANEURYSM
     Dosage: DAILY DOSE:300MG
  2. NORVASC [Concomitant]
  3. LOPRESSOR [Concomitant]

REACTIONS (6)
  - ANTICONVULSANT DRUG LEVEL BELOW THERAPEUTIC [None]
  - CONVULSION [None]
  - EMOTIONAL DISTRESS [None]
  - FEELING ABNORMAL [None]
  - MALAISE [None]
  - PALPITATIONS [None]
